FAERS Safety Report 26134547 (Version 1)
Quarter: 2025Q4

REPORT INFORMATION
  Report Type: Spontaneous
  Country: US (occurrence: US)
  Receive Date: 20251209
  Receipt Date: 20251209
  Transmission Date: 20260117
  Serious: Yes (Other)
  Sender: FOUNDATION CONSUMER HEALTHCARE, LLC
  Company Number: US-FOUNDATIONCONSUMERHC-2025-US-049691

PATIENT
  Age: 34 Year
  Sex: Female
  Weight: 142.88 kg

DRUGS (6)
  1. PLAN B ONE-STEP [Suspect]
     Active Substance: LEVONORGESTREL
     Indication: Post coital contraception
     Dosage: 1.5MG TABLET X 2 DOSES AT ONCE
     Route: 048
     Dates: start: 20250305, end: 20250305
  2. INSULIN NOS [Concomitant]
     Active Substance: INSULIN NOS
  3. UNSPECIFIED INGREDIENT [Concomitant]
     Active Substance: UNSPECIFIED INGREDIENT
  4. VITAMINS [Concomitant]
     Active Substance: VITAMINS
  5. LEVOTHYROXINE [Concomitant]
     Active Substance: LEVOTHYROXINE
  6. VITAMIN D2 [Concomitant]
     Active Substance: ERGOCALCIFEROL

REACTIONS (4)
  - Pregnancy after post coital contraception [Unknown]
  - Intentional product misuse [Recovered/Resolved]
  - Incorrect dosage administered [Recovered/Resolved]
  - Drug ineffective [Unknown]

NARRATIVE: CASE EVENT DATE: 20250301
